FAERS Safety Report 21049751 (Version 1)
Quarter: 2022Q3

REPORT INFORMATION
  Report Type: Spontaneous
  Country: US (occurrence: US)
  Receive Date: 20220706
  Receipt Date: 20220706
  Transmission Date: 20221026
  Serious: No
  Sender: FDA-Public Use
  Company Number: US-PFIZER INC-PV202200012665

PATIENT
  Age: 7 Year
  Sex: Female

DRUGS (1)
  1. CRIZOTINIB [Suspect]
     Active Substance: CRIZOTINIB
     Indication: Ameloblastoma
     Dosage: 250 MG, 2X/DAY
     Dates: start: 20211228

REACTIONS (3)
  - Pulmonary mass [Unknown]
  - Lymphadenopathy [Unknown]
  - Off label use [Unknown]

NARRATIVE: CASE EVENT DATE: 20211228
